FAERS Safety Report 22651232 (Version 1)
Quarter: 2023Q2

REPORT INFORMATION
  Report Type: Spontaneous
  Country: US (occurrence: None)
  Receive Date: 20230627
  Receipt Date: 20230627
  Transmission Date: 20230721
  Serious: Yes (Hospitalization)
  Sender: FDA-Public Use
  Company Number: None

PATIENT
  Age: 63 Year
  Sex: Female

DRUGS (1)
  1. OPSUMIT [Suspect]
     Active Substance: MACITENTAN
     Indication: Pulmonary arterial hypertension
     Dosage: FREQUENCY : DAILY;?
     Route: 048
     Dates: start: 20221202

REACTIONS (5)
  - Abdominal distension [None]
  - Adnexa uteri mass [None]
  - Ascites [None]
  - Omental oedema [None]
  - Ovarian cancer metastatic [None]

NARRATIVE: CASE EVENT DATE: 20230616
